FAERS Safety Report 13844161 (Version 1)
Quarter: 2017Q3

REPORT INFORMATION
  Report Type: Spontaneous
  Country: KR (occurrence: KR)
  Receive Date: 20170808
  Receipt Date: 20170808
  Transmission Date: 20171127
  Serious: Yes (Other)
  Sender: FDA-Public Use
  Company Number: KR-NORTH CREEK PHARMACEUTICALS LLC-2017VTS00647

PATIENT
  Age: 73 Year
  Sex: Female

DRUGS (1)
  1. DAPSONE. [Suspect]
     Active Substance: DAPSONE
     Indication: IMMUNE THROMBOCYTOPENIC PURPURA
     Dosage: 100 MG, 1X/DAY
     Route: 048

REACTIONS (1)
  - Drug reaction with eosinophilia and systemic symptoms [Recovered/Resolved]
